FAERS Safety Report 6056858-6 (Version None)
Quarter: 2009Q1

REPORT INFORMATION
  Report Type: 
  Country: None (occurrence: None)
  Receive Date: 20090129
  Receipt Date: 20090123
  Transmission Date: 20090719
  Serious: Yes (Hospitalization)
  Sender: FDA-Public Use
  Company Number: A0734789A

PATIENT
  Age: 56 Year
  Sex: Male
  Weight: 120.5 kg

DRUGS (7)
  1. AVANDIA [Suspect]
     Dosage: 4MG PER DAY
     Route: 048
     Dates: start: 20050502, end: 20070601
  2. ZOCOR [Concomitant]
  3. LOPRESSOR [Concomitant]
  4. PROTONIX [Concomitant]
  5. FORTAMET [Concomitant]
  6. COZAAR [Concomitant]
  7. PREVACID [Concomitant]

REACTIONS (5)
  - ACUTE CORONARY SYNDROME [None]
  - ARTERIOSCLEROSIS CORONARY ARTERY [None]
  - CORONARY ARTERY DISEASE [None]
  - HEART INJURY [None]
  - MYOCARDIAL INFARCTION [None]
